FAERS Safety Report 8251629-4 (Version None)
Quarter: 2012Q2

REPORT INFORMATION
  Report Type: 
  Country: None (occurrence: None)
  Receive Date: 20120402
  Receipt Date: 20120321
  Transmission Date: 20120825
  Serious: Yes (Other)
  Sender: FDA-Public Use
  Company Number: US-ELI_LILLY_AND_COMPANY-US201203007000

PATIENT
  Age: 86 Year
  Sex: Male

DRUGS (3)
  1. HUMALOG [Suspect]
     Indication: DIABETES MELLITUS
     Dosage: 8 U, PRN
     Dates: start: 20070101
  2. LANTUS [Concomitant]
     Dosage: UNK
  3. HUMALOG [Suspect]
     Dosage: 8 U, PRN
     Dates: start: 20070101

REACTIONS (4)
  - MALAISE [None]
  - BLOOD GLUCOSE DECREASED [None]
  - BLINDNESS [None]
  - WRONG TECHNIQUE IN DRUG USAGE PROCESS [None]
